FAERS Safety Report 7091779-1 (Version None)
Quarter: 2010Q4

REPORT INFORMATION
  Report Type: 
  Country: None (occurrence: None)
  Receive Date: 20101109
  Receipt Date: 20101102
  Transmission Date: 20110411
  Serious: Yes (Other)
  Sender: FDA-Public Use
  Company Number: US-AMGEN-KDL443855

PATIENT

DRUGS (7)
  1. PROLIA [Suspect]
     Indication: OSTEOPOROSIS POSTMENOPAUSAL
     Dosage: 60 MG, Q6MO
     Dates: start: 20101006
  2. PROLIA [Suspect]
     Dates: start: 20101006
  3. COUMADIN [Concomitant]
  4. CALTRATE                           /00108001/ [Concomitant]
  5. CENTRUM SILVER                     /01292501/ [Concomitant]
  6. DEMADEX [Concomitant]
  7. METOLAZONE [Concomitant]
     Dosage: UNK

REACTIONS (6)
  - ARTHROPATHY [None]
  - BONE PAIN [None]
  - FATIGUE [None]
  - NASAL CONGESTION [None]
  - SNEEZING [None]
  - SWELLING FACE [None]
